FAERS Safety Report 24883749 (Version 1)
Quarter: 2025Q1

REPORT INFORMATION
  Report Type: Spontaneous
  Country: CA (occurrence: None)
  Receive Date: 20250124
  Receipt Date: 20250124
  Transmission Date: 20250408
  Serious: Yes (Other)
  Sender: FDA-CTU
  Company Number: None

PATIENT
  Age: 19 Year
  Sex: Female
  Weight: 60 kg

DRUGS (3)
  1. ZIPRASIDONE [Suspect]
     Active Substance: ZIPRASIDONE
     Indication: Psychotic disorder
     Dosage: FREQUENCY : AT BEDTIME;?
     Route: 048
  2. ABILIFY [Concomitant]
     Active Substance: ARIPIPRAZOLE
  3. OLANZAPINE [Concomitant]
     Active Substance: OLANZAPINE

REACTIONS (13)
  - Panic attack [None]
  - Derealisation [None]
  - Depersonalisation/derealisation disorder [None]
  - Blindness transient [None]
  - Balance disorder [None]
  - Fall [None]
  - Somnolence [None]
  - Confusional state [None]
  - Intrusive thoughts [None]
  - Bladder disorder [None]
  - Abnormal dreams [None]
  - Anger [None]
  - Loss of personal independence in daily activities [None]

NARRATIVE: CASE EVENT DATE: 20170712
